FAERS Safety Report 13800767 (Version 1)
Quarter: 2017Q3

REPORT INFORMATION
  Report Type: Spontaneous
  Country: FR (occurrence: FR)
  Receive Date: 20170727
  Receipt Date: 20170727
  Transmission Date: 20171127
  Serious: Yes (Death, Hospitalization)
  Sender: FDA-Public Use
  Company Number: FR-ELI_LILLY_AND_COMPANY-FR201707007963

PATIENT
  Age: 64 Year
  Sex: Female

DRUGS (7)
  1. PACLITAXEL. [Suspect]
     Active Substance: PACLITAXEL
     Indication: OVARIAN EPITHELIAL CANCER
     Dosage: 80 MG/M2, CYCLICAL
     Route: 042
     Dates: start: 201106, end: 201201
  2. LYNPARZA [Suspect]
     Active Substance: OLAPARIB
     Indication: OVARIAN EPITHELIAL CANCER
     Dosage: 400 MG, BID
     Route: 048
     Dates: start: 201602, end: 201703
  3. CARBOPLATINE [Suspect]
     Active Substance: CARBOPLATIN
     Dosage: UNK, CYCLICAL
     Route: 042
     Dates: end: 2014
  4. AVASTIN [Suspect]
     Active Substance: BEVACIZUMAB
     Dosage: UNK, OTHER
     Route: 042
     Dates: end: 201403
  5. AVASTIN [Suspect]
     Active Substance: BEVACIZUMAB
     Indication: OVARIAN EPITHELIAL CANCER
     Dosage: UNK, WEEKLY (1/W)
     Route: 042
     Dates: start: 201106, end: 201201
  6. GEMZAR [Suspect]
     Active Substance: GEMCITABINE HYDROCHLORIDE
     Indication: OVARIAN EPITHELIAL CANCER
     Dosage: 100 MG/M2, CYCLICAL
     Route: 042
     Dates: start: 201405, end: 201603
  7. CARBOPLATINE [Suspect]
     Active Substance: CARBOPLATIN
     Indication: OVARIAN EPITHELIAL CANCER
     Dosage: UNK, CYCLICAL
     Route: 042
     Dates: start: 201106, end: 201201

REACTIONS (2)
  - Death [Fatal]
  - Acute myeloid leukaemia [Unknown]

NARRATIVE: CASE EVENT DATE: 20170310
